FAERS Safety Report 8921372 (Version 1)
Quarter: 2012Q4

REPORT INFORMATION
  Report Type: 
  Country: MX (occurrence: MX)
  Receive Date: 20121122
  Receipt Date: 20121122
  Transmission Date: 20130627
  Serious: Yes (Hospitalization)
  Sender: FDA-Public Use
  Company Number: MX-AMGEN-MEXSP2012074575

PATIENT
  Age: 9 Year
  Sex: Female
  Weight: 32 kg

DRUGS (1)
  1. NPLATE [Suspect]
     Indication: IDIOPATHIC THROMBOCYTOPENIC PURPURA
     Dosage: 25 mug, UNK
     Route: 030
     Dates: start: 20120529

REACTIONS (9)
  - Rash generalised [Unknown]
  - Urticaria [Unknown]
  - Diarrhoea [Unknown]
  - Pruritus [Unknown]
  - Platelet count increased [Unknown]
  - Platelet count decreased [Unknown]
  - Incorrect route of drug administration [Unknown]
  - Dizziness [Unknown]
  - Headache [Unknown]
